FAERS Safety Report 6256101-9 (Version None)
Quarter: 2009Q2

REPORT INFORMATION
  Report Type: 
  Country: None (occurrence: None)
  Receive Date: 20090630
  Receipt Date: 20090630
  Transmission Date: 20091009
  Serious: Yes (Hospitalization)
  Sender: FDA-Public Use
  Company Number: None

PATIENT
  Sex: Male

DRUGS (1)
  1. TIZANIDINE HCL [Suspect]
     Indication: BACK PAIN
     Dosage: 2MG TID PO
     Route: 048
     Dates: start: 20090616, end: 20090617

REACTIONS (4)
  - ASTHENIA [None]
  - BRADYCARDIA [None]
  - DRUG INTERACTION [None]
  - HYPOTENSION [None]
